FAERS Safety Report 6812887-3 (Version None)
Quarter: 2010Q3

REPORT INFORMATION
  Report Type: 
  Country: None (occurrence: None)
  Receive Date: 20100701
  Receipt Date: 20100625
  Transmission Date: 20110219
  Serious: Yes (Life-Threatening)
  Sender: FDA-Public Use
  Company Number: JP-SHIRE-SPV1-2009-02148

PATIENT

DRUGS (17)
  1. FOSRENOL [Suspect]
     Indication: RENAL FAILURE CHRONIC
     Dosage: UNK, UNKNOWN
     Route: 048
     Dates: start: 20090801
  2. RIZUMILE [Concomitant]
     Dosage: 10 MG, UNK
     Route: 048
  3. DIGOSIN [Concomitant]
     Dosage: .125 MG, UNK
     Route: 048
  4. ZYRTEC [Concomitant]
     Dosage: 10 MG, UNK
     Route: 048
  5. ALUMIGEL                           /00057401/ [Concomitant]
     Dosage: 1 G, UNK
     Route: 048
  6. PHENOBAL                           /00023201/ [Concomitant]
     Dosage: 60 MG, UNK
     Route: 048
  7. NITOROL [Concomitant]
     Dosage: 40 MG, UNK
     Route: 048
  8. LEBARAMIN [Concomitant]
     Dosage: 6 DF, UNK
     Route: 048
  9. CALCIUM CARBONATE [Concomitant]
     Indication: RENAL FAILURE CHRONIC
     Dosage: 1500 MG, UNK
     Route: 048
  10. SELBEX [Concomitant]
     Dosage: 1.5 G, UNK
     Route: 048
  11. ALFAROL [Concomitant]
     Dosage: .5 UG, UNK
     Route: 048
  12. ZETIA [Concomitant]
     Dosage: 10 MG, UNK
     Route: 048
  13. CINACALCET HYDROCHLORIDE [Concomitant]
     Indication: HYPERPARATHYROIDISM SECONDARY
     Dosage: 75 MG, UNK
     Route: 048
  14. ALOSITOL [Concomitant]
     Route: 048
  15. DICHLOTRIDE                        /00022001/ [Concomitant]
     Route: 048
  16. RENAGEL [Concomitant]
     Indication: RENAL FAILURE CHRONIC
  17. PROMEDES [Concomitant]
     Dosage: UNK, UNK
     Route: 065

REACTIONS (3)
  - DIVERTICULITIS [None]
  - INTESTINAL PERFORATION [None]
  - PERITONITIS [None]
